FAERS Safety Report 26143628 (Version 2)
Quarter: 2025Q4

REPORT INFORMATION
  Report Type: Other
  Country: GB (occurrence: GB)
  Receive Date: 20251211
  Receipt Date: 20251219
  Transmission Date: 20260118
  Serious: Yes (Hospitalization, Other)
  Sender: LEPU PHARMACEUTICAL TECHNOLOGY CO., LTD.
  Company Number: GB-Lepu Pharmaceutical Technology Co., Ltd.-2190351

PATIENT
  Age: 71 Year
  Sex: Male

DRUGS (8)
  1. ATORVASTATIN CALCIUM [Suspect]
     Active Substance: ATORVASTATIN CALCIUM
     Indication: Hypercholesterolaemia
  2. INSULIN NOS [Concomitant]
     Active Substance: INSULIN NOS
  3. EMPAGLIFLOZIN [Concomitant]
     Active Substance: EMPAGLIFLOZIN
  4. Formoterol fumarate dihydrate (Duoresp spiromax) [Concomitant]
  5. BUDESONIDE [Concomitant]
     Active Substance: BUDESONIDE
  6. MONTELUKAST [Concomitant]
     Active Substance: MONTELUKAST
  7. METFORMIN [Concomitant]
     Active Substance: METFORMIN HYDROCHLORIDE
  8. RAMIPRIL [Concomitant]
     Active Substance: RAMIPRIL

REACTIONS (6)
  - Respiratory failure [Recovering/Resolving]
  - Muscular weakness [Recovering/Resolving]
  - Immune-mediated myositis [Recovering/Resolving]
  - Dysphagia [Recovering/Resolving]
  - Atrial fibrillation [Recovering/Resolving]
  - Pneumonia aspiration [Recovering/Resolving]
